FAERS Safety Report 9099122 (Version 2)
Quarter: 2013Q1

REPORT INFORMATION
  Report Type: Report from Study
  Country: US (occurrence: US)
  Receive Date: 20130213
  Receipt Date: 20130228
  Transmission Date: 20140127
  Serious: Yes (Other)
  Sender: FDA-Public Use
  Company Number: US-ROCHE-1188051

PATIENT
  Age: 70 Year
  Sex: Female
  Weight: 65.38 kg

DRUGS (4)
  1. XELODA [Suspect]
     Indication: COLORECTAL CANCER METASTATIC
     Route: 048
     Dates: start: 20120218
  2. XELODA [Suspect]
     Route: 048
     Dates: end: 20130204
  3. AVASTIN [Suspect]
     Indication: COLORECTAL CANCER METASTATIC
     Route: 042
  4. 5-FU [Concomitant]
     Indication: COLORECTAL CANCER METASTATIC
     Route: 042

REACTIONS (4)
  - VIIth nerve paralysis [Not Recovered/Not Resolved]
  - Diarrhoea [Not Recovered/Not Resolved]
  - Nervousness [Not Recovered/Not Resolved]
  - Insomnia [Not Recovered/Not Resolved]
